FAERS Safety Report 9524485 (Version 1)
Quarter: 2013Q3

REPORT INFORMATION
  Report Type: Spontaneous
  Country: US (occurrence: None)
  Receive Date: 20130912
  Receipt Date: 20130912
  Transmission Date: 20140515
  Serious: No
  Sender: FDA-Public Use
  Company Number: None

PATIENT
  Age: 84 Year
  Sex: Female

DRUGS (6)
  1. TRAZODONE [Suspect]
     Indication: SLEEP DISORDER
     Dosage: 100 MG 1/2 TAB PER DAY 1X PER DAY BY MOUTH
     Route: 048
     Dates: start: 20130709, end: 20130731
  2. CARVEDOL [Concomitant]
  3. TORSEMIDE [Concomitant]
  4. TRAMADOL [Concomitant]
  5. TUMS [Concomitant]
  6. CALCIUM [Concomitant]

REACTIONS (4)
  - Back pain [None]
  - Pain in extremity [None]
  - Pain in extremity [None]
  - Abasia [None]
